FAERS Safety Report 23445830 (Version 1)
Quarter: 2024Q1

REPORT INFORMATION
  Report Type: Spontaneous
  Country: CH (occurrence: CH)
  Receive Date: 20240126
  Receipt Date: 20240126
  Transmission Date: 20240410
  Serious: Yes (Hospitalization)
  Sender: FDA-Public Use
  Company Number: None

PATIENT
  Age: 67 Year
  Sex: Female
  Weight: 67.8 kg

DRUGS (20)
  1. CARBOPLATIN [Suspect]
     Active Substance: CARBOPLATIN
     Indication: Lung adenocarcinoma
     Dosage: IN 100 ML NACL 0.9%
     Route: 042
     Dates: start: 20231229, end: 20231229
  2. OLANZAPINE [Suspect]
     Active Substance: OLANZAPINE
     Indication: Nausea
     Dosage: MAX. 2X/D ; AS NECESSARY
     Route: 048
  3. YERVOY [Suspect]
     Active Substance: IPILIMUMAB
     Indication: Lung adenocarcinoma
     Dosage: IN 50 ML NACL 0.9% I.V
     Route: 042
     Dates: start: 20231222, end: 20231222
  4. OPDIVO [Suspect]
     Active Substance: NIVOLUMAB
     Indication: Lung adenocarcinoma
     Dosage: IN 100ML NACL 0.9%
     Route: 042
     Dates: start: 20231222, end: 20231222
  5. ALIMTA [Suspect]
     Active Substance: PEMETREXED DISODIUM
     Indication: Lung adenocarcinoma
     Dosage: IN 100 ML NACL 0.9% IV
     Route: 042
     Dates: start: 20231229, end: 20231229
  6. LEFLUNOMIDE [Suspect]
     Active Substance: LEFLUNOMIDE
     Indication: Rheumatoid arthritis
     Dates: start: 20171023, end: 20231229
  7. AMLODIPINE BESYLATE\HYDROCHLOROTHIAZIDE\OLMESARTAN MEDOXOMIL [Concomitant]
     Active Substance: AMLODIPINE BESYLATE\HYDROCHLOROTHIAZIDE\OLMESARTAN MEDOXOMIL
     Dosage: FREQ: 1-0-0?DAILY DOSE: 1 DOSAGE FORM
     Route: 048
     Dates: end: 20240105
  8. METAMUCIL [Concomitant]
     Active Substance: PLANTAGO SEED
     Dosage: DAILY DOSE: 7 GRAM
     Route: 048
     Dates: end: 20240105
  9. CYANOCOBALAMIN [Concomitant]
     Active Substance: CYANOCOBALAMIN
     Route: 042
  10. POLYETHYLENE GLYCOL 3350\POTASSIUM CHLORIDE\SODIUM BICARBONATE\SODIUM [Concomitant]
     Active Substance: POLYETHYLENE GLYCOL 3350\POTASSIUM CHLORIDE\SODIUM BICARBONATE\SODIUM CHLORIDE
     Indication: Constipation
     Dosage: 1-2X/D ; AS NECESSARY
     Route: 048
  11. BEXIN [Concomitant]
     Active Substance: DEXTROMETHORPHAN HYDROBROMIDE
     Indication: Cough
     Dosage: MAX. 3X/D ; AS NECESSARY
     Route: 048
  12. Redormin [Concomitant]
     Dosage: 1-2 TABLETS AS NECESSARY ; AS NECESSARY
     Route: 048
  13. FOLVITE [Concomitant]
     Active Substance: FOLIC ACID
     Dosage: 1-0-0-0?DAILY DOSE: 1 MILLIGRAM
     Route: 048
  14. ATORVASTATIN [Concomitant]
     Active Substance: ATORVASTATIN
     Dosage: 0-0-1-0?DAILY DOSE: 20 MILLIGRAM
     Route: 048
  15. BISOPROLOL MEPHA [Concomitant]
     Dosage: 1-0-0-0?DAILY DOSE: 2.5 MILLIGRAM
     Route: 048
  16. ELTROXIN LF [Concomitant]
     Dosage: 1-0-0-0?DAILY DOSE: 100 MICROGRAM
     Route: 048
  17. DEXAMETHASONE [Concomitant]
     Active Substance: DEXAMETHASONE
     Route: 048
  18. Weleda Helleborus niger planta tota (Dil 3 D) [Concomitant]
     Dosage: 1-1-1-1
     Route: 048
     Dates: end: 20240105
  19. VISCUM ALBUM FRUITING TOP [Concomitant]
     Active Substance: VISCUM ALBUM FRUITING TOP
     Dosage: 1 PIECE MONDAY/WEDNESDAY/FRIDAY
     Route: 058
     Dates: end: 20240105
  20. LOPERAMID-MEPHA [Concomitant]
     Indication: Diarrhoea
     Dosage: INITIALLY 2 TABLETS, FOR FURTHER DIARRHOEA 1 TABLET, MAX. 8X/D ; AS NECESSARY
     Route: 048

REACTIONS (4)
  - Bacterial colitis [Recovering/Resolving]
  - Mucosal inflammation [Recovering/Resolving]
  - Petechiae [Unknown]
  - Off label use [Unknown]

NARRATIVE: CASE EVENT DATE: 20231231
